FAERS Safety Report 14684689 (Version 1)
Quarter: 2018Q1

REPORT INFORMATION
  Report Type: Spontaneous
  Country: JP (occurrence: JP)
  Receive Date: 20180327
  Receipt Date: 20180327
  Transmission Date: 20180509
  Serious: Yes (Other)
  Sender: FDA-Public Use
  Company Number: JP-009507513-1802JPN000819J

PATIENT
  Age: 41 Year
  Sex: Female

DRUGS (4)
  1. CANCIDAS [Suspect]
     Active Substance: CASPOFUNGIN ACETATE
     Indication: PNEUMONIA
     Dosage: 70 MG, QD
     Route: 041
     Dates: start: 20180125, end: 20180125
  2. CANCIDAS [Suspect]
     Active Substance: CASPOFUNGIN ACETATE
     Dosage: 50 MG, QD
     Route: 041
     Dates: start: 20180126, end: 20180208
  3. VANCOMYCIN [Suspect]
     Active Substance: VANCOMYCIN
     Indication: PNEUMONIA
     Dosage: UNK
     Route: 041
     Dates: start: 20180125, end: 20180208
  4. MEROPEN [Suspect]
     Active Substance: MEROPENEM
     Indication: PNEUMONIA
     Dosage: 0.5 G, BID
     Route: 041
     Dates: start: 20180125, end: 20180208

REACTIONS (1)
  - Cytomegalovirus chorioretinitis [Recovering/Resolving]

NARRATIVE: CASE EVENT DATE: 20180127
